FAERS Safety Report 5792849-8 (Version None)
Quarter: 2008Q2

REPORT INFORMATION
  Report Type: 
  Country: None (occurrence: None)
  Receive Date: 20080627
  Receipt Date: 20080616
  Transmission Date: 20081010
  Serious: Yes (Hospitalization)
  Sender: FDA-Public Use
  Company Number: CH-ELI_LILLY_AND_COMPANY-CH200805002764

PATIENT
  Age: 75 Year
  Sex: Female

DRUGS (5)
  1. ZYPREXA [Suspect]
     Indication: AGGRESSION
     Dosage: 10 MG, UNK
     Route: 048
     Dates: start: 20060918
  2. ZYPREXA [Suspect]
     Dosage: 10 MG, UNK
     Route: 048
     Dates: start: 20080111
  3. ABILIFY [Concomitant]
     Dosage: 10 MG, DAILY (1/D)
     Route: 048
     Dates: start: 20080109, end: 20080110
  4. LORAZEPAM [Concomitant]
     Dosage: 2.5 MG, UNKNOWN
     Route: 048
     Dates: start: 20060918, end: 20060918
  5. LORAZEPAM [Concomitant]
     Dosage: 2.5 MG, UNKNOWN
     Route: 048
     Dates: start: 20080111, end: 20080111

REACTIONS (3)
  - FALL [None]
  - HEAD INJURY [None]
  - SEDATION [None]
